FAERS Safety Report 18566676 (Version 1)
Quarter: 2020Q4

REPORT INFORMATION
  Report Type: Report from Study
  Country: IT (occurrence: IT)
  Receive Date: 20201201
  Receipt Date: 20201201
  Transmission Date: 20210114
  Serious: Yes (Other)
  Sender: FDA-Public Use
  Company Number: IT-TEVA-2020-IT-1849076

PATIENT
  Age: 60 Year
  Sex: Male

DRUGS (6)
  1. OXALIPLATIN. [Suspect]
     Active Substance: OXALIPLATIN
     Indication: RECTAL ADENOCARCINOMA
     Dosage: RECEIVED 6 CYCLES OF FOLFOX AND THEREAFTER ONE CYCLE WITH CETUXIMAB
     Route: 065
  2. LEUCOVORIN. [Suspect]
     Active Substance: LEUCOVORIN
     Indication: RECTAL ADENOCARCINOMA
     Dosage: RECEIVED 6 CYCLES EACH OF FOLFOX AND FOLFIRI
     Route: 065
  3. CETUXIMAB. [Suspect]
     Active Substance: CETUXIMAB
     Indication: RECTAL ADENOCARCINOMA
     Dosage: RECEIVED 6 CYCLES ALONG WITH FOLFOX REGIMEN AND THEREAFTER ONE CYCLE WITH OXALIPLATIN
     Route: 065
  4. 5-FLUOROURACIL [Suspect]
     Active Substance: FLUOROURACIL
     Indication: RECTAL ADENOCARCINOMA
     Dosage: INITIATED AT 50% DOSE REDUCTION; RECEIVED 6 CYCLES EACH OF FOLFIRI AND FOLFOX REGIMEN
     Route: 065
  5. IRINOTECAN [Suspect]
     Active Substance: IRINOTECAN
     Indication: RECTAL ADENOCARCINOMA
     Dosage: RECEIVED 6 CYCLES OF FOLFIRI AND THEREAFTER CONTINUED WITH BEVACIZUMAB
     Route: 065
  6. BEVACIZUMAB. [Suspect]
     Active Substance: BEVACIZUMAB
     Indication: RECTAL ADENOCARCINOMA
     Dosage: RECEIVED 6 CYCLES ALONG WITH FOLFIRI AND THEREAFTER CONTINUED WITH IRINOTECAN
     Route: 065

REACTIONS (3)
  - Nausea [Unknown]
  - Rash maculo-papular [Unknown]
  - Diarrhoea [Unknown]
